FAERS Safety Report 5501024-3 (Version None)
Quarter: 2007Q4

REPORT INFORMATION
  Report Type: 
  Country: None (occurrence: None)
  Receive Date: 20071029
  Receipt Date: 20071025
  Transmission Date: 20080405
  Serious: Yes (Death, Life-Threatening, Hospitalization)
  Sender: FDA-Public Use
  Company Number: PHHO2007MY09835

PATIENT
  Age: 33 Year
  Sex: Male

DRUGS (4)
  1. CERTICAN [Suspect]
     Indication: RENAL TRANSPLANT
     Dosage: NO TREATMENT
  2. PREDNISOLONE [Concomitant]
  3. NEORAL [Suspect]
     Indication: RENAL TRANSPLANT
  4. MYFORTIC [Suspect]
     Indication: RENAL TRANSPLANT

REACTIONS (5)
  - EXPLORATIVE LAPAROTOMY [None]
  - HYPOVOLAEMIC SHOCK [None]
  - INTRA-ABDOMINAL HAEMORRHAGE [None]
  - MULTI-ORGAN FAILURE [None]
  - SEPSIS [None]
